FAERS Safety Report 7166926-3 (Version None)
Quarter: 2010Q4

REPORT INFORMATION
  Report Type: 
  Country: None (occurrence: None)
  Receive Date: 20101216
  Receipt Date: 20101207
  Transmission Date: 20110411
  Serious: Yes (Hospitalization)
  Sender: FDA-Public Use
  Company Number: JP-ASTRAZENECA-2010SE56232

PATIENT
  Age: 32 Year
  Sex: Male

DRUGS (4)
  1. OMEPRAL [Suspect]
     Indication: GASTRIC ULCER
     Route: 048
     Dates: start: 20080214, end: 20080327
  2. LAXOBERON [Suspect]
     Indication: CONSTIPATION
     Dosage: DOSE UNKNOWN
     Route: 048
     Dates: start: 20080214, end: 20080327
  3. TAURINE [Suspect]
     Indication: JAUNDICE
     Dosage: DOSE UNKNOWN
     Route: 048
     Dates: start: 20080214, end: 20080327
  4. PREDNISOLONE [Concomitant]
     Indication: LIVER DISORDER
     Route: 048
     Dates: start: 20080311

REACTIONS (2)
  - HEPATITIS B [None]
  - VANISHING BILE DUCT SYNDROME [None]
